FAERS Safety Report 10375266 (Version 1)
Quarter: 2014Q3

REPORT INFORMATION
  Report Type: Spontaneous
  Country: US (occurrence: US)
  Receive Date: 20140811
  Receipt Date: 20140811
  Transmission Date: 20150326
  Serious: Yes (Other)
  Sender: FDA-Public Use
  Company Number: US-AMGEN-USASP2014059603

PATIENT
  Age: 30 Year
  Sex: Female

DRUGS (1)
  1. ENBREL [Suspect]
     Active Substance: ETANERCEPT
     Indication: PSORIASIS
     Dosage: 50 MG, QWK
     Route: 065
     Dates: start: 201203

REACTIONS (10)
  - Musculoskeletal pain [Recovered/Resolved]
  - Skin discolouration [Recovered/Resolved]
  - Sinusitis [Recovered/Resolved]
  - Lip blister [Recovered/Resolved]
  - Psoriasis [Recovered/Resolved]
  - Back pain [Recovered/Resolved]
  - Pain [Recovered/Resolved]
  - Blister [Recovered/Resolved]
  - Skin lesion [Recovered/Resolved]
  - Breast pain [Recovered/Resolved]

NARRATIVE: CASE EVENT DATE: 201311
